FAERS Safety Report 18259079 (Version 2)
Quarter: 2020Q4

REPORT INFORMATION
  Report Type: Spontaneous
  Country: US (occurrence: US)
  Receive Date: 20200911
  Receipt Date: 20201009
  Transmission Date: 20210113
  Serious: No
  Sender: FDA-Public Use
  Company Number: US-PFIZER INC-2019442643

PATIENT
  Age: 53 Year
  Sex: Female

DRUGS (2)
  1. LYRICA [Suspect]
     Active Substance: PREGABALIN
     Dosage: 150 MG, AS NEEDED (1 CAPSULE BY MOUTH BID (TWICE A DAY) FOR ONE MONTH (30 DAYS), AS NEEDED)
     Route: 048
  2. LYRICA [Suspect]
     Active Substance: PREGABALIN
     Indication: NEURALGIA
     Dosage: 150 MG, 1X/DAY (ONE CAPSULE BY MOUTH OD FOR ONE MONTH (30 DAYS) AS DIRECTED)
     Route: 048

REACTIONS (1)
  - Memory impairment [Unknown]
